FAERS Safety Report 22646921 (Version 1)
Quarter: 2023Q2

REPORT INFORMATION
  Report Type: Spontaneous
  Country: AU (occurrence: AU)
  Receive Date: 20230627
  Receipt Date: 20230627
  Transmission Date: 20230722
  Serious: Yes (Hospitalization)
  Sender: FDA-Public Use
  Company Number: AU-TASMAN PHARMA, INC.-2023TSM00118

PATIENT
  Sex: Male

DRUGS (24)
  1. CLOZAPINE [Suspect]
     Active Substance: CLOZAPINE
     Dosage: 12.5 MG
     Dates: start: 20210129, end: 20210201
  2. CLOZAPINE [Suspect]
     Active Substance: CLOZAPINE
     Dosage: 50 MG
     Dates: start: 20210202, end: 20210208
  3. CLOZAPINE [Suspect]
     Active Substance: CLOZAPINE
     Dosage: 125 MG
     Dates: start: 20210209, end: 20210215
  4. CLOZAPINE [Suspect]
     Active Substance: CLOZAPINE
     Dosage: 250 MG
     Dates: start: 20210216, end: 20210222
  5. CLOZAPINE [Suspect]
     Active Substance: CLOZAPINE
     Dosage: 300 MG
     Dates: start: 20210223, end: 20210301
  6. CLOZAPINE [Suspect]
     Active Substance: CLOZAPINE
     Dosage: 325 MG
     Dates: start: 20210302, end: 20210308
  7. CLOZAPINE [Suspect]
     Active Substance: CLOZAPINE
     Dosage: 350 MG
     Dates: start: 20210309, end: 20210322
  8. CLOZAPINE [Suspect]
     Active Substance: CLOZAPINE
     Dosage: 450 MG
     Dates: start: 20210330, end: 20210405
  9. CLOZAPINE [Suspect]
     Active Substance: CLOZAPINE
     Dosage: 450 MG
     Dates: start: 20210511, end: 20210531
  10. CLOZAPINE [Suspect]
     Active Substance: CLOZAPINE
     Dosage: 250 MG
     Dates: start: 20221012, end: 20221017
  11. CLOZAPINE [Suspect]
     Active Substance: CLOZAPINE
     Dosage: 300 MG
     Dates: start: 20221018, end: 20221024
  12. CLOZAPINE [Suspect]
     Active Substance: CLOZAPINE
     Dosage: 350 MG
     Dates: start: 20221108, end: 20221122
  13. CLOZAPINE [Suspect]
     Active Substance: CLOZAPINE
     Dosage: 425 MG
     Dates: start: 20210323, end: 20210329
  14. CLOZAPINE [Suspect]
     Active Substance: CLOZAPINE
     Dosage: 450 MG
     Dates: start: 20210406, end: 20210510
  15. CLOZAPINE [Suspect]
     Active Substance: CLOZAPINE
     Dosage: 450 MG
     Dates: start: 20210601, end: 20210717
  16. VERSACLOZ [Suspect]
     Active Substance: CLOZAPINE
     Dosage: 50 MG
     Dates: start: 20220929, end: 20221003
  17. VERSACLOZ [Suspect]
     Active Substance: CLOZAPINE
     Dosage: 100 MG
     Dates: start: 20221004, end: 20221011
  18. VERSACLOZ [Suspect]
     Active Substance: CLOZAPINE
     Dosage: 350 MG
     Dates: start: 20221025, end: 20221107
  19. VERSACLOZ [Suspect]
     Active Substance: CLOZAPINE
     Dosage: 350 MG
     Dates: start: 20221123, end: 20221214
  20. CLOZAPINE [Suspect]
     Active Substance: CLOZAPINE
     Dosage: 350 MG
     Dates: start: 20221215, end: 20230104
  21. CLOZAPINE [Suspect]
     Active Substance: CLOZAPINE
     Dosage: 400 MG
     Dates: start: 20230105, end: 20230126
  22. CLOZAPINE [Suspect]
     Active Substance: CLOZAPINE
     Dosage: 375 MG
     Dates: start: 20230127, end: 20230307
  23. CLOZAPINE [Suspect]
     Active Substance: CLOZAPINE
     Dosage: 400 MG
     Dates: start: 20230308, end: 20230502
  24. CLOZAPINE [Suspect]
     Active Substance: CLOZAPINE
     Dosage: 450 MG
     Dates: start: 20230503, end: 20230530

REACTIONS (4)
  - Hospitalisation [Unknown]
  - Treatment noncompliance [Not Recovered/Not Resolved]
  - Sinus tachycardia [Unknown]
  - Product dose omission issue [Not Recovered/Not Resolved]

NARRATIVE: CASE EVENT DATE: 20210717
